FAERS Safety Report 9556329 (Version 2)
Quarter: 2013Q3

REPORT INFORMATION
  Report Type: Spontaneous
  Country: DE (occurrence: DE)
  Receive Date: 20130926
  Receipt Date: 20130926
  Transmission Date: 20140515
  Serious: Yes (Life-Threatening, Hospitalization)
  Sender: FDA-Public Use
  Company Number: DE-PFIZER INC-2013127562

PATIENT
  Age: 44 Year
  Sex: Male
  Weight: 120 kg

DRUGS (2)
  1. LYRICA [Suspect]
     Dosage: 3000 MG, DAILY
     Route: 048
  2. METHADONE [Concomitant]

REACTIONS (6)
  - Intentional overdose [Unknown]
  - Drug abuse [Unknown]
  - Poisoning [Recovered/Resolved]
  - Drug abuser [Unknown]
  - Confusional state [Unknown]
  - Paraesthesia [Unknown]
